FAERS Safety Report 6293038-3 (Version None)
Quarter: 2009Q3

REPORT INFORMATION
  Report Type: 
  Country: None (occurrence: None)
  Receive Date: 20090731
  Receipt Date: 20090729
  Transmission Date: 20100115
  Serious: Yes (Life-Threatening)
  Sender: FDA-Public Use
  Company Number: FR-BRISTOL-MYERS SQUIBB COMPANY-14721534

PATIENT
  Age: 79 Year
  Sex: Female

DRUGS (11)
  1. COAPROVEL [Suspect]
  2. AVANDAMET [Suspect]
     Dates: end: 20090603
  3. BI-PROFENID [Suspect]
     Indication: PAIN
     Dates: start: 20090514, end: 20090523
  4. MONO-TILDIEM LP [Concomitant]
  5. ZOCOR [Concomitant]
  6. LASIX [Concomitant]
  7. GAVISCON [Concomitant]
  8. EUPANTOL [Concomitant]
  9. DAFALGAN [Concomitant]
  10. IXPRIM [Concomitant]
  11. ALTIM [Concomitant]

REACTIONS (2)
  - LACTIC ACIDOSIS [None]
  - RENAL FAILURE ACUTE [None]
